FAERS Safety Report 10183889 (Version 4)
Quarter: 2016Q4

REPORT INFORMATION
  Report Type: Report from Study
  Country: DE (occurrence: DE)
  Receive Date: 20140520
  Receipt Date: 20161021
  Transmission Date: 20170206
  Serious: Yes (Hospitalization, Other)
  Sender: FDA-Public Use
  Company Number: DE-INCYTE CORPORATION-2013IN002490

PATIENT
  Sex: Male
  Weight: 87 kg

DRUGS (3)
  1. INCB018424 [Suspect]
     Active Substance: RUXOLITINIB
     Indication: MYELOFIBROSIS
     Dosage: 30 MG, DAILY (TWICE)
     Route: 048
     Dates: start: 20130614, end: 20130928
  2. INCB018424 [Suspect]
     Active Substance: RUXOLITINIB
     Dosage: 15 MG, QD
     Route: 048
     Dates: start: 20131205, end: 20140115
  3. INCB018424 [Suspect]
     Active Substance: RUXOLITINIB
     Dosage: 5 MG, QD
     Route: 048
     Dates: start: 20140211, end: 20140225

REACTIONS (6)
  - Pulmonary embolism [Recovered/Resolved]
  - Asthenia [Recovered/Resolved]
  - Pleural effusion [Unknown]
  - Pneumonia [Recovered/Resolved]
  - Tracheobronchitis [Unknown]
  - Painful respiration [Recovered/Resolved]

NARRATIVE: CASE EVENT DATE: 20130929
